FAERS Safety Report 8840508 (Version 1)
Quarter: 2012Q4

REPORT INFORMATION
  Report Type: 
  Country: US (occurrence: US)
  Receive Date: 20121015
  Receipt Date: 20121015
  Transmission Date: 20130627
  Serious: No
  Sender: FDA-Public Use
  Company Number: US-ROCHE-GNE268732

PATIENT
  Age: 53 Year
  Sex: Female
  Weight: 86.26 kg

DRUGS (5)
  1. NUTROPIN [Suspect]
     Indication: HYPOTHALAMO-PITUITARY DISORDER
     Dosage: UNK
     Route: 065
     Dates: start: 20080825
  2. NUTROPIN [Suspect]
     Indication: DWARFISM
  3. NUTROPIN [Suspect]
     Indication: GROWTH HORMONE DEFICIENCY
  4. NUTROPIN [Suspect]
     Indication: DWARFISM
  5. CONCOMITANT DRUGS [Concomitant]
     Indication: PRODUCT USED FOR UNKNOWN INDICATION

REACTIONS (5)
  - Hypoaesthesia [Recovered/Resolved]
  - Erythema [Unknown]
  - Cerebrovascular accident [Unknown]
  - Injection site rash [Unknown]
  - Product quality issue [Unknown]
